FAERS Safety Report 5484370-1 (Version None)
Quarter: 2007Q4

REPORT INFORMATION
  Report Type: 
  Country: None (occurrence: None)
  Receive Date: 20071012
  Receipt Date: 20070928
  Transmission Date: 20080405
  Serious: Yes (Other)
  Sender: FDA-Public Use
  Company Number: CH-GENENTECH-249154

PATIENT
  Sex: Female
  Weight: 48 kg

DRUGS (3)
  1. HERCEPTIN [Suspect]
     Indication: BREAST CANCER
     Dosage: 160 MG, 1/WEEK
     Route: 042
     Dates: start: 20051116
  2. NAVELBINE [Concomitant]
     Indication: BREAST CANCER
  3. DOCETAXEL [Concomitant]
     Indication: BREAST CANCER

REACTIONS (1)
  - BRONCHIAL HYPERREACTIVITY [None]
